FAERS Safety Report 16186460 (Version 1)
Quarter: 2019Q2

REPORT INFORMATION
  Report Type: Spontaneous
  Country: FR (occurrence: FR)
  Receive Date: 20190411
  Receipt Date: 20190411
  Transmission Date: 20190711
  Serious: Yes (Other)
  Sender: FDA-Public Use
  Company Number: FR-MYLANLABS-2019M1034202

PATIENT
  Age: 69 Year
  Sex: Female
  Weight: 73 kg

DRUGS (2)
  1. PREDNISONE. [Suspect]
     Active Substance: PREDNISONE
     Indication: RHEUMATOID ARTHRITIS
     Dosage: 5 MILLIGRAM
     Route: 048
     Dates: start: 20060101
  2. METOJECT [Suspect]
     Active Substance: METHOTREXATE SODIUM
     Indication: RHEUMATOID ARTHRITIS
     Dosage: 20 MILLIGRAM
     Dates: start: 20060701

REACTIONS (1)
  - Eye inflammation [Unknown]

NARRATIVE: CASE EVENT DATE: 20180801
